FAERS Safety Report 9496380 (Version 2)
Quarter: 2013Q3

REPORT INFORMATION
  Report Type: Spontaneous
  Country: US (occurrence: None)
  Receive Date: 20130829
  Receipt Date: 20130925
  Transmission Date: 20140515
  Serious: Yes (Death, Hospitalization)
  Sender: FDA-Public Use
  Company Number: UTC-036946

PATIENT
  Age: 77 Year
  Sex: Female

DRUGS (3)
  1. REMODULIN (5 MG/ML, INJECTION FOR INFUSION) (TREPROSTINIL SODIUM) [Suspect]
     Indication: PULMONARY ARTERIAL HYPERTENSION
     Dosage: 53.28 UG/KG (0.037 UG/KG/1 IN 1 MIN),SUBCUTANEOUS
     Route: 058
     Dates: start: 20130628
  2. REVATIO (SILDENAFIL CITRATE) (UNKNOWN) (SILDENAFIL) [Concomitant]
  3. WARFARIN (UNKNOWN) [Concomitant]

REACTIONS (3)
  - Death [None]
  - Pulmonary arterial hypertension [None]
  - Disease progression [None]
